FAERS Safety Report 4569555-0 (Version None)
Quarter: 2005Q1

REPORT INFORMATION
  Report Type: 
  Country: None (occurrence: None)
  Receive Date: 20050201
  Receipt Date: 20050124
  Transmission Date: 20050727
  Serious: No
  Sender: FDA-Public Use
  Company Number: 2005GB00122

PATIENT
  Age: 36 Year
  Sex: Female

DRUGS (4)
  1. ATENOLOL [Suspect]
  2. CARBAMAZEPINE [Suspect]
     Indication: TEMPORAL LOBE EPILEPSY
  3. TOPIRAMATE [Suspect]
  4. ACETAZOLAMIDE [Suspect]

REACTIONS (3)
  - BRADYCARDIA [None]
  - CONVULSION [None]
  - SINUS TACHYCARDIA [None]
